FAERS Safety Report 6974608-3 (Version None)
Quarter: 2010Q3

REPORT INFORMATION
  Report Type: 
  Country: None (occurrence: None)
  Receive Date: 20100909
  Receipt Date: 20100909
  Transmission Date: 20110219
  Serious: Yes (Hospitalization, Other)
  Sender: FDA-Public Use
  Company Number: None

PATIENT
  Age: 32 Year
  Sex: Female
  Weight: 108.8633 kg

DRUGS (1)
  1. LARIAM [Suspect]
     Indication: MALARIA PROPHYLAXIS
     Dates: start: 20100131, end: 20100131

REACTIONS (7)
  - ABNORMAL DREAMS [None]
  - ANXIETY [None]
  - DELUSION [None]
  - INSOMNIA [None]
  - PARANOIA [None]
  - SUICIDAL IDEATION [None]
  - TACHYCARDIA [None]
